FAERS Safety Report 4448337-4 (Version None)
Quarter: 2004Q3

REPORT INFORMATION
  Report Type: 
  Country: None (occurrence: None)
  Receive Date: 20040909
  Receipt Date: 20040831
  Transmission Date: 20050211
  Serious: Yes (Hospitalization)
  Sender: FDA-Public Use
  Company Number: 2004231351JP

PATIENT
  Age: 76 Year
  Sex: Male

DRUGS (6)
  1. CABERGOLINE [Suspect]
     Indication: PARKINSON'S DISEASE
     Dosage: 3 MG/DAY, ORAL
     Route: 048
     Dates: start: 20000902, end: 20040830
  2. NEO DOPASTON [Concomitant]
  3. SELEGILINE HYDROCHLORIDE [Concomitant]
  4. DOPS (DROXIDOPA) [Concomitant]
  5. MUCODYNE [Concomitant]
  6. ALOSENN (SENNA FRUIT, SENNA LEAF, RUBIA ROOT TINCTURE, ACHILLEA, TARAX [Concomitant]

REACTIONS (4)
  - DYSPHAGIA [None]
  - HYPOXIA [None]
  - INTERSTITIAL LUNG DISEASE [None]
  - PLEURAL EFFUSION [None]
